FAERS Safety Report 9513486 (Version 1)
Quarter: 2013Q3

REPORT INFORMATION
  Report Type: Spontaneous
  Country: US (occurrence: US)
  Receive Date: 20130910
  Receipt Date: 20130910
  Transmission Date: 20140515
  Serious: No
  Sender: FDA-Public Use
  Company Number: US-TARO-2013P1005196

PATIENT
  Age: 65 Year
  Sex: Male
  Weight: 88.91 kg

DRUGS (14)
  1. WARFARIN SODIUM TABLETS USP 5MG [Suspect]
     Route: 048
     Dates: start: 20130317, end: 20130327
  2. WARFARIN SODIUM TABLETS USP 5MG [Suspect]
     Route: 048
     Dates: start: 20130328, end: 20130331
  3. WARFARIN SODIUM TABLETS USP 5MG [Suspect]
     Route: 048
     Dates: start: 20130401, end: 20130401
  4. WARFARIN SODIUM TABLETS USP 5MG [Suspect]
     Route: 048
     Dates: start: 20130402, end: 20130402
  5. WARFARIN SODIUM TABLETS USP 5MG [Suspect]
     Route: 048
     Dates: start: 20130403, end: 20130403
  6. WARFARIN SODIUM TABLETS USP 5MG [Suspect]
     Route: 048
     Dates: start: 20130404, end: 20130404
  7. WARFARIN SODIUM TABLETS USP 5MG [Suspect]
     Route: 048
     Dates: start: 20130405, end: 20130408
  8. WARFARIN SODIUM TABLETS USP 5MG [Suspect]
     Route: 048
     Dates: start: 20130409, end: 20130409
  9. WARFARIN SODIUM TABLETS USP 5MG [Suspect]
     Route: 048
     Dates: start: 20130410, end: 20130411
  10. TOPROL XL [Concomitant]
  11. LASIX [Concomitant]
  12. PANTOPRAZOLE [Concomitant]
  13. MAG OXIDE [Concomitant]
  14. KCL 20 MEQ [Concomitant]

REACTIONS (2)
  - International normalised ratio fluctuation [Recovering/Resolving]
  - Product quality issue [Recovered/Resolved]
